FAERS Safety Report 12464374 (Version 1)
Quarter: 2016Q2

REPORT INFORMATION
  Report Type: Report from Study
  Country: DE (occurrence: DE)
  Receive Date: 20160614
  Receipt Date: 20160614
  Transmission Date: 20160815
  Serious: Yes (Death, Hospitalization)
  Sender: FDA-Public Use
  Company Number: DE-ELI_LILLY_AND_COMPANY-DE201605007102

PATIENT
  Age: 63 Year
  Sex: Female
  Weight: 42 kg

DRUGS (1)
  1. CYRAMZA [Suspect]
     Active Substance: RAMUCIRUMAB
     Indication: OESOPHAGEAL ADENOCARCINOMA
     Dosage: 8 MG/KG, 2/M
     Route: 042
     Dates: start: 20160414, end: 20160428

REACTIONS (1)
  - Small intestinal perforation [Fatal]

NARRATIVE: CASE EVENT DATE: 20160506
